FAERS Safety Report 17107086 (Version 1)
Quarter: 2019Q4

REPORT INFORMATION
  Report Type: Report from Study
  Country: GR (occurrence: GR)
  Receive Date: 20191204
  Receipt Date: 20191204
  Transmission Date: 20200122
  Serious: Yes (Life-Threatening)
  Sender: FDA-Public Use
  Company Number: GR-AMGEN-GRCNI2019200250

PATIENT
  Age: 67 Year
  Sex: Male
  Weight: 100 kg

DRUGS (11)
  1. VOCIFLON [Concomitant]
     Dosage: 500 MILLIGRAM
     Dates: start: 20171121, end: 20190920
  2. BACTRIMEL [Concomitant]
     Active Substance: SULFAMETHOXAZOLE\TRIMETHOPRIM
     Dosage: 850 MILLIGRAM
     Dates: start: 20171121, end: 20190920
  3. DIOVAN [Concomitant]
     Active Substance: VALSARTAN
     Dosage: 1 UNK
     Dates: start: 2016, end: 20190920
  4. ZOMETA [Concomitant]
     Active Substance: ZOLEDRONIC ACID
     Dosage: 4 MILLIGRAM
     Dates: start: 20171121, end: 20190920
  5. DEXAMETHASONE. [Concomitant]
     Active Substance: DEXAMETHASONE
     Indication: PLASMA CELL MYELOMA
     Dosage: 8 MILLIGRAM
     Dates: start: 20180320
  6. CALCIORAL D3 [Concomitant]
     Dosage: 1 UNK
     Dates: start: 20190122, end: 20190920
  7. CARFILZOMIB [Suspect]
     Active Substance: CARFILZOMIB
     Indication: PLASMA CELL MYELOMA
     Dosage: 54 MILLIGRAM
     Route: 042
     Dates: start: 20180320
  8. SOLURIC [Concomitant]
     Active Substance: ALLOPURINOL
     Dosage: 150 MILLIGRAM
     Dates: start: 20180625, end: 20190920
  9. LUMAREN [Concomitant]
     Dosage: 150 MILLIGRAM
     Dates: start: 20171121, end: 20190920
  10. LENALIDOMIDE [Suspect]
     Active Substance: LENALIDOMIDE
     Indication: PLASMA CELL MYELOMA
     Dosage: 25 MILLIGRAM
     Route: 065
     Dates: start: 20180320
  11. SALOSPIR [Concomitant]
     Active Substance: ASPIRIN
     Dosage: 100 MILLIGRAM
     Dates: start: 20180320, end: 20190920

REACTIONS (2)
  - Neutropenia [Recovered/Resolved]
  - Thrombocytopenia [Recovered/Resolved]

NARRATIVE: CASE EVENT DATE: 20191008
